FAERS Safety Report 16192178 (Version 2)
Quarter: 2019Q3

REPORT INFORMATION
  Report Type: Report from Study
  Country: BR (occurrence: BR)
  Receive Date: 20190412
  Receipt Date: 20190802
  Transmission Date: 20191004
  Serious: Yes (Other)
  Sender: FDA-Public Use
  Company Number: PHHY2019BR072304

PATIENT
  Age: 63 Year
  Sex: Female

DRUGS (8)
  1. COSENTYX [Suspect]
     Active Substance: SECUKINUMAB
     Dosage: 150 MG, UNK (PEN)
     Route: 065
     Dates: start: 20190518
  2. COSENTYX [Suspect]
     Active Substance: SECUKINUMAB
     Indication: PSORIASIS
     Dosage: 300 MG, UNK (PEN)
     Route: 065
     Dates: start: 20190321
  3. COSENTYX [Suspect]
     Active Substance: SECUKINUMAB
     Indication: PSORIATIC ARTHROPATHY
     Dosage: 300 MG, UNK (PEN)
     Route: 065
     Dates: start: 20190328
  4. COSENTYX [Suspect]
     Active Substance: SECUKINUMAB
     Dosage: 150 MG, UNK (PEN)
     Route: 065
     Dates: start: 20190718
  5. COSENTYX [Suspect]
     Active Substance: SECUKINUMAB
     Dosage: 300 MG, UNK (PEN)
     Route: 065
     Dates: start: 20190404
  6. COSENTYX [Suspect]
     Active Substance: SECUKINUMAB
     Dosage: 300 MG, UNK (PEN)
     Route: 065
     Dates: start: 20190418
  7. COSENTYX [Suspect]
     Active Substance: SECUKINUMAB
     Dosage: 300 MG, UNK (PEN)
     Route: 065
     Dates: start: 20190411
  8. COSENTYX [Suspect]
     Active Substance: SECUKINUMAB
     Dosage: 150 MG, UNK (PEN)
     Route: 065
     Dates: start: 20190618

REACTIONS (18)
  - Insomnia [Unknown]
  - Mobility decreased [Unknown]
  - Arrhythmia [Unknown]
  - Inflammation [Unknown]
  - Musculoskeletal stiffness [Unknown]
  - Neck pain [Unknown]
  - Joint lock [Recovered/Resolved]
  - Arthralgia [Unknown]
  - Back pain [Recovered/Resolved]
  - Product prescribing error [Recovered/Resolved]
  - Spinal pain [Recovered/Resolved]
  - Drug ineffective [Unknown]
  - Spinal disorder [Unknown]
  - Pain in extremity [Unknown]
  - Hypertension [Unknown]
  - Pain [Not Recovered/Not Resolved]
  - Wound [Unknown]
  - Arthritis [Unknown]

NARRATIVE: CASE EVENT DATE: 20190323
